FAERS Safety Report 7314559-8 (Version None)
Quarter: 2011Q1

REPORT INFORMATION
  Report Type: 
  Country: None (occurrence: None)
  Receive Date: 20110225
  Receipt Date: 20101015
  Transmission Date: 20110831
  Serious: No
  Sender: FDA-Public Use
  Company Number: US-MYLANLABS-2010S1018050

PATIENT
  Age: 43 Year
  Sex: Female
  Weight: 104.33 kg

DRUGS (4)
  1. ACCUTANE [Suspect]
     Indication: ACNE
     Route: 048
     Dates: start: 20100604
  2. AMNESTEEM [Suspect]
     Route: 048
     Dates: end: 20100907
  3. CLARAVIS [Suspect]
     Indication: ACNE
     Route: 048
  4. AMNESTEEM [Suspect]
     Indication: ACNE
     Route: 048
     Dates: end: 20100907

REACTIONS (2)
  - BLOOD TRIGLYCERIDES INCREASED [None]
  - ASPARTATE AMINOTRANSFERASE INCREASED [None]
